FAERS Safety Report 6038339-9 (Version None)
Quarter: 2009Q1

REPORT INFORMATION
  Report Type: 
  Country: None (occurrence: None)
  Receive Date: 20090115
  Receipt Date: 20090106
  Transmission Date: 20090719
  Serious: Yes (Hospitalization, Other)
  Sender: FDA-Public Use
  Company Number: US-AVENTIS-200714261US

PATIENT
  Age: 37 Year
  Sex: Male

DRUGS (4)
  1. LANTUS [Suspect]
  2. LANTUS [Suspect]
     Dosage: DOSE: UNK
     Dates: start: 20070601
  3. OPTICLIK (INSULIN INJECTION PEN) [Suspect]
  4. ACEON [Concomitant]
     Dosage: DOSE: UNK

REACTIONS (16)
  - BURNS THIRD DEGREE [None]
  - CAUSTIC INJURY [None]
  - ESCHAR [None]
  - HYPERGLYCAEMIA [None]
  - HYPOGLYCAEMIA [None]
  - INJECTION SITE ANAESTHESIA [None]
  - INJECTION SITE DISCOLOURATION [None]
  - INJECTION SITE ERYTHEMA [None]
  - INJECTION SITE HAEMATOMA [None]
  - INJECTION SITE INDURATION [None]
  - INJECTION SITE IRRITATION [None]
  - INJECTION SITE NECROSIS [None]
  - INJECTION SITE PAIN [None]
  - INJECTION SITE SWELLING [None]
  - PALLOR [None]
  - SKIN DISORDER [None]
